FAERS Safety Report 10188652 (Version 1)
Quarter: 2014Q2

REPORT INFORMATION
  Report Type: Spontaneous
  Country: US (occurrence: None)
  Receive Date: 20140521
  Receipt Date: 20140521
  Transmission Date: 20141212
  Serious: Yes (Hospitalization)
  Sender: FDA-Public Use
  Company Number: None

PATIENT
  Age: 90 Year
  Sex: Male
  Weight: 78.6 kg

DRUGS (2)
  1. FUROSEMIDE [Suspect]
     Indication: OEDEMA
     Route: 048
     Dates: start: 20121214, end: 20131218
  2. METOLAZONE [Suspect]
     Dosage: MG  EVERY DAY PO
     Route: 048
     Dates: start: 20130318, end: 20131218

REACTIONS (7)
  - Drug eruption [None]
  - Pain [None]
  - Eosinophilia [None]
  - Erythema [None]
  - Pruritus [None]
  - Skin exfoliation [None]
  - Rash [None]
